FAERS Safety Report 12747650 (Version 3)
Quarter: 2019Q2

REPORT INFORMATION
  Report Type: Spontaneous
  Country: US (occurrence: US)
  Receive Date: 20160915
  Receipt Date: 20190430
  Transmission Date: 20190711
  Serious: No
  Sender: FDA-Public Use
  Company Number: US-JAZZ-2016-US-009882

PATIENT
  Age: 38 Year
  Sex: Male

DRUGS (17)
  1. XYREM [Suspect]
     Active Substance: SODIUM OXYBATE
     Dosage: 2.25 G, BID
     Route: 048
     Dates: start: 201408, end: 201411
  2. XYREM [Suspect]
     Active Substance: SODIUM OXYBATE
     Dosage: 3 G, BID
     Route: 048
     Dates: start: 201205, end: 201206
  3. KEPPRA [Concomitant]
     Active Substance: LEVETIRACETAM
  4. VIMPAT [Concomitant]
     Active Substance: LACOSAMIDE
  5. XYREM [Suspect]
     Active Substance: SODIUM OXYBATE
     Indication: NARCOLEPSY
     Dosage: 2.25 G, BID
     Route: 048
     Dates: start: 201204, end: 201205
  6. XYREM [Suspect]
     Active Substance: SODIUM OXYBATE
     Dosage: 3 G, BID
     Route: 048
     Dates: start: 201411, end: 201506
  7. OXCARBAZEPINE. [Concomitant]
     Active Substance: OXCARBAZEPINE
  8. LEVETIRACETAM. [Concomitant]
     Active Substance: LEVETIRACETAM
  9. XYREM [Suspect]
     Active Substance: SODIUM OXYBATE
     Dosage: 4.5 G, BID
     Route: 048
     Dates: start: 201206
  10. TRILEPTAL [Suspect]
     Active Substance: OXCARBAZEPINE
     Indication: PRODUCT USED FOR UNKNOWN INDICATION
  11. FOLBEE [Concomitant]
     Active Substance: CYANOCOBALAMIN\FOLIC ACID\PYRIDOXINE HYDROCHLORIDE
  12. NEUPRO [Concomitant]
     Active Substance: ROTIGOTINE
  13. XYREM [Suspect]
     Active Substance: SODIUM OXYBATE
     Dosage: 2.25 G, BID
     Route: 048
     Dates: start: 201506
  14. AMANTADINE. [Concomitant]
     Active Substance: AMANTADINE HYDROCHLORIDE
  15. DIAZEPAM. [Concomitant]
     Active Substance: DIAZEPAM
  16. LAMOTRIGINE. [Concomitant]
     Active Substance: LAMOTRIGINE
  17. CARBIDOPA AND LEVODOPA [Concomitant]
     Active Substance: CARBIDOPA\LEVODOPA

REACTIONS (1)
  - Depression [Not Recovered/Not Resolved]

NARRATIVE: CASE EVENT DATE: 20160525
